FAERS Safety Report 15102460 (Version 3)
Quarter: 2018Q3

REPORT INFORMATION
  Report Type: Spontaneous
  Country: US (occurrence: US)
  Receive Date: 20180703
  Receipt Date: 20180817
  Transmission Date: 20181010
  Serious: Yes (Hospitalization)
  Sender: FDA-Public Use
  Company Number: US-SA-2018SA164605

PATIENT

DRUGS (1)
  1. XYZAL ALLERGY 24HR [Suspect]
     Active Substance: LEVOCETIRIZINE DIHYDROCHLORIDE
     Indication: RESPIRATORY TRACT INFECTION
     Dosage: 5 MG, QD
     Route: 065

REACTIONS (5)
  - Hyperhidrosis [Unknown]
  - Nightmare [Unknown]
  - Seasonal allergy [Unknown]
  - Swelling [Unknown]
  - Hallucination [Unknown]
